FAERS Safety Report 7284064-6 (Version None)
Quarter: 2011Q1

REPORT INFORMATION
  Report Type: 
  Country: None (occurrence: None)
  Receive Date: 20110209
  Receipt Date: 20110131
  Transmission Date: 20110831
  Serious: Yes (Other)
  Sender: FDA-Public Use
  Company Number: US-JNJCH-2011002522

PATIENT

DRUGS (1)
  1. PURELL ORIGINAL [Suspect]
     Indication: ACCIDENTAL EXPOSURE
     Dosage: TEXT:UNKNOWN
     Route: 047

REACTIONS (2)
  - EYE BURNS [None]
  - ACCIDENTAL EXPOSURE [None]
